FAERS Safety Report 18956622 (Version 3)
Quarter: 2021Q4

REPORT INFORMATION
  Report Type: Spontaneous
  Country: CN (occurrence: CN)
  Receive Date: 20210302
  Receipt Date: 20211020
  Transmission Date: 20220303
  Serious: Yes (Other)
  Sender: FDA-Public Use
  Company Number: CN-ROCHE-2776321

PATIENT
  Age: 71 Year
  Sex: Male

DRUGS (15)
  1. MABTHERA [Suspect]
     Active Substance: RITUXIMAB
     Indication: Follicular lymphoma stage III
     Dosage: DATE OF TREATMENTS: 18/MAY/2020, 13/JUN/2020 AND 08/JUL/2020, 05/AUG/2020, 28/AUG/2020, 18/SEP/2020,
     Route: 065
     Dates: start: 20200501
  2. CYCLOPHOSPHAMIDE [Concomitant]
     Active Substance: CYCLOPHOSPHAMIDE
     Indication: Follicular lymphoma stage III
     Dates: start: 20200501
  3. CYCLOPHOSPHAMIDE [Concomitant]
     Active Substance: CYCLOPHOSPHAMIDE
     Dosage: 18/MAY/2020, 13/JUN/2020, 08/JUL/2020
  4. CYCLOPHOSPHAMIDE [Concomitant]
     Active Substance: CYCLOPHOSPHAMIDE
     Dates: start: 20210219
  5. VINDESINE [Concomitant]
     Active Substance: VINDESINE
     Indication: Follicular lymphoma stage III
     Dates: start: 20200501
  6. VINDESINE [Concomitant]
     Active Substance: VINDESINE
     Dosage: 18/MAY/2020, 13/JUN/2020, 08/JUL/2020
  7. EPIRUBICIN [Concomitant]
     Active Substance: EPIRUBICIN
     Indication: Follicular lymphoma stage III
     Dates: start: 20200501
  8. PREDNISONE [Concomitant]
     Active Substance: PREDNISONE
     Indication: Follicular lymphoma stage III
     Dates: start: 20200501
  9. DEXAMETHASONE [Concomitant]
     Active Substance: DEXAMETHASONE
     Indication: Follicular lymphoma stage III
     Dosage: 18/MAY/2020, 13/JUN/2020, 08/JUL/2020
  10. LENALIDOMIDE [Concomitant]
     Active Substance: LENALIDOMIDE
     Indication: Follicular lymphoma stage III
     Dosage: 28/AUG/2020, 18/SEP/2020, 19/OCT/2020, AND 13/NOV/2020
     Dates: start: 20200805
  11. ZANUBRUTINIB [Concomitant]
     Active Substance: ZANUBRUTINIB
     Indication: Follicular lymphoma stage III
     Dosage: 28/AUG/2020, 18/SEP/2020, 19/OCT/2020, AND 13/NOV/2020
     Route: 048
     Dates: start: 20200805
  12. BENDAMUSTINE [Concomitant]
     Active Substance: BENDAMUSTINE
     Indication: Follicular lymphoma stage III
     Dates: start: 20201205
  13. DOXORUBICIN [Concomitant]
     Active Substance: DOXORUBICIN
     Indication: Follicular lymphoma stage III
     Dosage: 18/MAY/2020, 13/JUN/2020, 08/JUL/2020
  14. FLUOROURACIL [Concomitant]
     Active Substance: FLUOROURACIL
     Indication: Follicular lymphoma stage III
     Dates: start: 20210219
  15. DECITABINE [Concomitant]
     Active Substance: DECITABINE
     Indication: Follicular lymphoma stage III
     Dates: start: 20210219

REACTIONS (14)
  - Agranulocytosis [Unknown]
  - White blood cell count decreased [Unknown]
  - Drug ineffective [Unknown]
  - Diarrhoea [Unknown]
  - Pyrexia [Unknown]
  - Cytokine release syndrome [Recovering/Resolving]
  - Immune effector cell-associated neurotoxicity syndrome [Recovering/Resolving]
  - Pneumonia [Unknown]
  - Myelosuppression [Not Recovered/Not Resolved]
  - Atrial fibrillation [Unknown]
  - Dysphoria [Unknown]
  - Altered state of consciousness [Not Recovered/Not Resolved]
  - Hepatic failure [Recovering/Resolving]
  - Renal failure [Recovering/Resolving]

NARRATIVE: CASE EVENT DATE: 20210101
